FAERS Safety Report 9848667 (Version 1)
Quarter: 2013Q4

REPORT INFORMATION
  Report Type: Spontaneous
  Country: US (occurrence: None)
  Receive Date: 20131224
  Receipt Date: 20131224
  Transmission Date: 20140711
  Serious: Yes (Other)
  Sender: FDA-Public Use
  Company Number: PHEH2013US004696

PATIENT
  Sex: Female

DRUGS (1)
  1. FEMARA (LETROZOLE) [Suspect]
     Indication: BREAST CANCER
     Dosage: UNK --/--/2011 TO ONGOING THERAPY DATES
     Dates: start: 2011

REACTIONS (2)
  - Neoplasm progression [None]
  - Malignant neoplasm progression [None]
